FAERS Safety Report 9012111 (Version 3)
Quarter: 2013Q1

REPORT INFORMATION
  Report Type: Spontaneous
  Country: US (occurrence: None)
  Receive Date: 20121227
  Receipt Date: 20130220
  Transmission Date: 20140127
  Serious: Yes (Hospitalization, Other)
  Sender: FDA-Public Use
  Company Number: ZYD-12-AE-260

PATIENT
  Sex: Male

DRUGS (13)
  1. WARFARIN [Suspect]
     Indication: HEART VALVE REPLACEMENT
     Route: 048
     Dates: start: 20121126
  2. WARFARIN [Suspect]
     Indication: HEART VALVE REPLACEMENT
     Route: 048
     Dates: start: 20121126, end: 20121221
  3. ZANTAC [Concomitant]
  4. METFORMIN [Concomitant]
  5. ABILIFY [Concomitant]
  6. NUVIGIL [Concomitant]
  7. ENALAPRIL [Concomitant]
  8. XANAX [Concomitant]
  9. EFFEXOR [Concomitant]
  10. MORPHINE SR [Concomitant]
  11. DITROPAN XR [Concomitant]
  12. TOPROL XL [Concomitant]
  13. OXYCODONE/ACETAMINOPHEN [Concomitant]

REACTIONS (4)
  - Transient ischaemic attack [None]
  - International normalised ratio increased [None]
  - Anticoagulation drug level below therapeutic [None]
  - Product substitution issue [None]
